FAERS Safety Report 7391275-8 (Version None)
Quarter: 2011Q2

REPORT INFORMATION
  Report Type: 
  Country: None (occurrence: None)
  Receive Date: 20110404
  Receipt Date: 20110325
  Transmission Date: 20111010
  Serious: Yes (Hospitalization)
  Sender: FDA-Public Use
  Company Number: US-ASTELLAS-2011US000534

PATIENT

DRUGS (2)
  1. TACROLIMUS [Suspect]
     Dosage: 0.03 %, UNKNOWN/D
     Route: 061
  2. TACROLIMUS [Suspect]
     Indication: DERMATITIS ATOPIC
     Dosage: 0.1 %, UID/QD
     Route: 061
     Dates: start: 20061206

REACTIONS (7)
  - RHINITIS ALLERGIC [None]
  - RESPIRATORY DISTRESS [None]
  - ECZEMA [None]
  - ASTHMA [None]
  - MYCOPLASMA INFECTION [None]
  - INTERSTITIAL LUNG DISEASE [None]
  - PRURITUS [None]
